FAERS Safety Report 18710609 (Version 2)
Quarter: 2021Q1

REPORT INFORMATION
  Report Type: Report from Study
  Country: NL (occurrence: NL)
  Receive Date: 20210107
  Receipt Date: 20210118
  Transmission Date: 20210419
  Serious: Yes (Disabling, Other)
  Sender: FDA-Public Use
  Company Number: NL-AUROBINDO-AUR-APL-2021-000128

PATIENT
  Age: 73 Year
  Sex: Male

DRUGS (3)
  1. OXALIPLATIN CONCENTRATE FOR SOLUTION FOR INFUSION [Suspect]
     Active Substance: OXALIPLATIN
     Indication: RECTAL CANCER
     Dosage: 520 MILLIGRAM/SQ. METER, 4 CYCLES,DOSE OF CURRENT CYCLE?200, CUMULATIVE DOSE?800
     Route: 041
  2. CAPECITABINE. [Suspect]
     Active Substance: CAPECITABINE
     Indication: RECTAL CANCER
     Dosage: UNK,4 CYCLES
     Route: 041
  3. BEVACIZUMAB. [Suspect]
     Active Substance: BEVACIZUMAB
     Indication: RECTAL CANCER
     Dosage: UNK, 4 CYCLE
     Route: 041

REACTIONS (8)
  - Neurotoxicity [Recovered/Resolved]
  - Pain in jaw [Unknown]
  - Fatigue [Unknown]
  - Dysaesthesia pharynx [Unknown]
  - Neuropathy peripheral [Recovered/Resolved]
  - Loss of personal independence in daily activities [Unknown]
  - Impaired quality of life [Unknown]
  - Malaise [Unknown]
